FAERS Safety Report 4855969-8 (Version None)
Quarter: 2005Q4

REPORT INFORMATION
  Report Type: 
  Country: None (occurrence: None)
  Receive Date: 20051214
  Receipt Date: 20051206
  Transmission Date: 20060501
  Serious: Yes (Hospitalization, Other)
  Sender: FDA-Public Use
  Company Number: 2005160038

PATIENT
  Age: 81 Year
  Sex: Female
  Weight: 88.905 kg

DRUGS (3)
  1. CELEBREX [Suspect]
     Indication: FEELING ABNORMAL
     Dosage: ONLY TOOK 1 DOSE (200 MG), ORAL
     Route: 048
     Dates: start: 20051115, end: 20051115
  2. CELEBREX [Suspect]
     Indication: PAIN
     Dosage: ONLY TOOK 1 DOSE (200 MG), ORAL
     Route: 048
     Dates: start: 20051115, end: 20051115
  3. BENADRYL [Suspect]
     Indication: HYPERSENSITIVITY

REACTIONS (4)
  - DISTURBANCE IN ATTENTION [None]
  - DRUG HYPERSENSITIVITY [None]
  - GLOSSITIS [None]
  - RASH MORBILLIFORM [None]
